FAERS Safety Report 5171437-0 (Version None)
Quarter: 2006Q4

REPORT INFORMATION
  Report Type: 
  Country: None (occurrence: None)
  Receive Date: 20061205
  Receipt Date: 20061114
  Transmission Date: 20070319
  Serious: Yes (Other)
  Sender: FDA-Public Use
  Company Number: S06-USA-04244-01

PATIENT
  Age: 64 Year
  Sex: Female

DRUGS (1)
  1. CAMPRAL [Suspect]
     Indication: ALCOHOLISM
     Dosage: 666 MG BID PO
     Route: 048
     Dates: start: 20060123, end: 20060601

REACTIONS (2)
  - CORNEAL OEDEMA [None]
  - VISION BLURRED [None]
